FAERS Safety Report 6099811-9 (Version None)
Quarter: 2009Q1

REPORT INFORMATION
  Report Type: 
  Country: None (occurrence: None)
  Receive Date: 20090303
  Receipt Date: 20090220
  Transmission Date: 20090719
  Serious: Yes (Other)
  Sender: FDA-Public Use
  Company Number: PHBS2008BE02987

PATIENT
  Sex: Female

DRUGS (11)
  1. SANDOSTATIN LAR [Suspect]
     Indication: NEUROENDOCRINE TUMOUR
     Dosage: 20 MG, QMO
     Route: 030
     Dates: start: 20060701, end: 20080601
  2. LYRICA [Concomitant]
     Indication: PAIN
     Dosage: 300 MG, BID
  3. SINGULAIR [Concomitant]
     Dosage: UNK
  4. DULCOLAX [Concomitant]
     Dosage: UNK
  5. PANTOPRAZOLE SODIUM [Concomitant]
     Dosage: UNK
  6. SERETIDE [Concomitant]
     Dosage: UNK
  7. DUOVENT [Concomitant]
     Dosage: UNK
  8. DAFLON [Concomitant]
     Dosage: UNK
  9. ALPRAZOLAM [Concomitant]
     Dosage: UNK
  10. LORMETAZEPAM [Concomitant]
     Dosage: UNK
  11. CITALOPRAM [Concomitant]
     Dosage: UNK

REACTIONS (2)
  - HYPERALDOSTERONISM [None]
  - WEIGHT INCREASED [None]
